FAERS Safety Report 25551562 (Version 4)
Quarter: 2025Q3

REPORT INFORMATION
  Report Type: Spontaneous
  Country: US (occurrence: US)
  Receive Date: 20250714
  Receipt Date: 20250811
  Transmission Date: 20251021
  Serious: No
  Sender: PFIZER
  Company Number: US-PFIZER INC-202500139335

PATIENT
  Age: 61 Year
  Sex: Male

DRUGS (1)
  1. GENOTROPIN [Suspect]
     Active Substance: SOMATROPIN
     Dates: start: 202501

REACTIONS (4)
  - Drug dose omission by device [Unknown]
  - Wrong device used [Unknown]
  - Device dispensing error [Unknown]
  - Device leakage [Unknown]
